FAERS Safety Report 23084718 (Version 1)
Quarter: 2023Q4

REPORT INFORMATION
  Report Type: Spontaneous
  Country: US (occurrence: None)
  Receive Date: 20231019
  Receipt Date: 20231019
  Transmission Date: 20240109
  Serious: Yes (Death)
  Sender: FDA-Public Use
  Company Number: None

PATIENT
  Age: 76 Year
  Sex: Male

DRUGS (5)
  1. BIKTARVY [Suspect]
     Active Substance: BICTEGRAVIR SODIUM\EMTRICITABINE\TENOFOVIR ALAFENAMIDE FUMARATE
     Dosage: FREQUENCY : DAILY;?
     Route: 048
     Dates: start: 20211208, end: 20231018
  2. METFORMIN [Concomitant]
  3. METOPROLOL [Concomitant]
     Active Substance: METOPROLOL
  4. ATORVASTATIN [Concomitant]
  5. Multivitamin [Concomitant]

REACTIONS (1)
  - Dementia [None]

NARRATIVE: CASE EVENT DATE: 20231018
